FAERS Safety Report 11682690 (Version 3)
Quarter: 2015Q4

REPORT INFORMATION
  Report Type: Spontaneous
  Country: IT (occurrence: IT)
  Receive Date: 20151029
  Receipt Date: 20151117
  Transmission Date: 20160304
  Serious: Yes (Death, Hospitalization)
  Sender: FDA-Public Use
  Company Number: IT-KADMON PHARMACEUTICALS, LLC-KAD201510-003718

PATIENT
  Age: 71 Year
  Sex: Male
  Weight: 100 kg

DRUGS (5)
  1. ENALAPRIL MALEATE. [Concomitant]
     Active Substance: ENALAPRIL MALEATE
     Route: 048
  2. NICARDIPINA [Concomitant]
     Route: 048
  3. RIBAVIRIN. [Suspect]
     Active Substance: RIBAVIRIN
     Indication: HEPATIC CIRRHOSIS
     Route: 048
     Dates: start: 20150723, end: 20150906
  4. LAMICTAL [Concomitant]
     Active Substance: LAMOTRIGINE
     Route: 048
  5. HARVONI [Suspect]
     Active Substance: LEDIPASVIR\SOFOSBUVIR
     Indication: HEPATIC CIRRHOSIS
     Route: 048
     Dates: start: 20150723, end: 20150906

REACTIONS (2)
  - Sudden death [Fatal]
  - Hospitalisation [Unknown]

NARRATIVE: CASE EVENT DATE: 201507
